FAERS Safety Report 7431886-4 (Version None)
Quarter: 2011Q2

REPORT INFORMATION
  Report Type: 
  Country: None (occurrence: None)
  Receive Date: 20110419
  Receipt Date: 20110419
  Transmission Date: 20111010
  Serious: Yes (Hospitalization)
  Sender: FDA-Public Use
  Company Number: None

PATIENT
  Age: 57 Year
  Sex: Male
  Weight: 58.7408 kg

DRUGS (1)
  1. IODIXANOL [Suspect]
     Indication: MASS
     Dosage: ONCE IV
     Route: 042
     Dates: start: 20110412, end: 20110412

REACTIONS (5)
  - RASH [None]
  - EYELID OEDEMA [None]
  - LIP SWELLING [None]
  - SCROTAL DISORDER [None]
  - ANGIOEDEMA [None]
